FAERS Safety Report 9155323 (Version 1)
Quarter: 2013Q1

REPORT INFORMATION
  Report Type: Spontaneous
  Country: CZ (occurrence: CZ)
  Receive Date: 20130311
  Receipt Date: 20130311
  Transmission Date: 20140127
  Serious: Yes (Other)
  Sender: FDA-Public Use
  Company Number: CZ-ROCHE-1199865

PATIENT
  Sex: 0

DRUGS (5)
  1. CAPECITABINE [Suspect]
     Indication: NEOPLASM MALIGNANT
     Route: 042
  2. 5-FU [Suspect]
     Indication: NEOPLASM MALIGNANT
     Route: 042
  3. FOLINIC ACID [Suspect]
     Indication: NEOPLASM MALIGNANT
     Route: 065
  4. IRINOTECAN [Suspect]
     Indication: NEOPLASM MALIGNANT
     Route: 065
  5. OXALIPLATIN [Suspect]
     Indication: NEOPLASM MALIGNANT
     Route: 065

REACTIONS (6)
  - Neutropenia [Unknown]
  - Diarrhoea [Unknown]
  - Mucosal inflammation [Unknown]
  - Vomiting [Unknown]
  - Leukopenia [Unknown]
  - Thrombocytopenia [Unknown]
